FAERS Safety Report 6542393-5 (Version None)
Quarter: 2010Q1

REPORT INFORMATION
  Report Type: 
  Country: None (occurrence: None)
  Receive Date: 20100114
  Receipt Date: 20100114
  Transmission Date: 20100710
  Serious: Yes (Other)
  Sender: FDA-Public Use
  Company Number: None

PATIENT
  Age: 49 Year
  Sex: Female
  Weight: 56.6996 kg

DRUGS (1)
  1. CYMBALTA [Suspect]
     Indication: MIGRAINE PROPHYLAXIS
     Dosage: 30MG. ONCE DAILY PO
     Route: 048
     Dates: start: 20091202, end: 20100114

REACTIONS (8)
  - ABDOMINAL PAIN UPPER [None]
  - CONDITION AGGRAVATED [None]
  - DIZZINESS [None]
  - DRUG WITHDRAWAL SYNDROME [None]
  - FREQUENT BOWEL MOVEMENTS [None]
  - MIGRAINE [None]
  - NAUSEA [None]
  - VOMITING [None]
